FAERS Safety Report 20620813 (Version 1)
Quarter: 2022Q1

REPORT INFORMATION
  Report Type: Report from Study
  Country: US (occurrence: US)
  Receive Date: 20220322
  Receipt Date: 20220322
  Transmission Date: 20220423
  Serious: Yes (Hospitalization, Other)
  Sender: FDA-Public Use
  Company Number: US-TAKEDA-US201905556

PATIENT
  Age: 7 Year
  Sex: Male
  Weight: 14 kg

DRUGS (9)
  1. TEDUGLUTIDE [Suspect]
     Active Substance: TEDUGLUTIDE
     Indication: Short-bowel syndrome
     Dosage: STUDY DRUG NOT ADMINISTERED
     Route: 065
     Dates: end: 20140312
  2. TEDUGLUTIDE [Suspect]
     Active Substance: TEDUGLUTIDE
     Indication: Short-bowel syndrome
     Dosage: STUDY DRUG NOT ADMINISTERED
     Route: 065
     Dates: end: 20140312
  3. TEDUGLUTIDE [Suspect]
     Active Substance: TEDUGLUTIDE
     Indication: Short-bowel syndrome
     Dosage: STUDY DRUG NOT ADMINISTERED
     Route: 065
     Dates: end: 20140312
  4. TEDUGLUTIDE [Suspect]
     Active Substance: TEDUGLUTIDE
     Indication: Short-bowel syndrome
     Dosage: STUDY DRUG NOT ADMINISTERED
     Route: 065
     Dates: end: 20140312
  5. NAFCILLIN [Concomitant]
     Active Substance: NAFCILLIN SODIUM
     Indication: Vascular device infection
     Dosage: 10000 MILLIGRAM, QID
     Route: 042
     Dates: start: 20210308, end: 20210322
  6. PIPERACILLIN AND TAZOBACTAM [Concomitant]
     Active Substance: PIPERACILLIN SODIUM\TAZOBACTAM SODIUM
     Indication: Vascular device infection
     Dosage: 1500 MILLIGRAM, QID
     Route: 042
     Dates: start: 20160718, end: 20160723
  7. TPN [Concomitant]
     Active Substance: AMINO ACIDS\DEXTROSE\ELECTROLYTES NOS\SOYBEAN OIL
     Indication: Product used for unknown indication
  8. CEFEPIME [Concomitant]
     Active Substance: CEFEPIME HYDROCHLORIDE
     Indication: Vascular device infection
     Dosage: UNK
     Route: 065
  9. FLUCONAZOLE [Concomitant]
     Active Substance: FLUCONAZOLE
     Indication: Vascular device infection
     Dosage: 300 MILLIGRAM, QD
     Route: 042
     Dates: start: 20200421, end: 20200505

REACTIONS (1)
  - Vascular device infection [Recovered/Resolved]

NARRATIVE: CASE EVENT DATE: 20181018
